FAERS Safety Report 15704457 (Version 1)
Quarter: 2018Q4

REPORT INFORMATION
  Report Type: Other
  Country: SE (occurrence: SE)
  Receive Date: 20181210
  Receipt Date: 20181210
  Transmission Date: 20190205
  Serious: Yes (Hospitalization, Other)
  Sender: FDA-Public Use
  Company Number: SE-COVIS PHARMA B.V.-2018COV03884

PATIENT
  Age: 55 Year
  Sex: Male

DRUGS (1)
  1. OMEPRAZOLE MAGNESIUM. [Suspect]
     Active Substance: OMEPRAZOLE MAGNESIUM
     Indication: GASTROOESOPHAGEAL REFLUX DISEASE
     Dosage: UNK
     Route: 048
     Dates: end: 20180901

REACTIONS (1)
  - Eosinophilic cystitis [Recovered/Resolved]

NARRATIVE: CASE EVENT DATE: 19980101
